FAERS Safety Report 7656980-4 (Version None)
Quarter: 2011Q3

REPORT INFORMATION
  Report Type: 
  Country: None (occurrence: None)
  Receive Date: 20110804
  Receipt Date: 20110728
  Transmission Date: 20111222
  Serious: Yes (Hospitalization)
  Sender: FDA-Public Use
  Company Number: FR-JNJFOC-20110504416

PATIENT
  Sex: Female

DRUGS (11)
  1. HALDOL [Suspect]
     Indication: DELIRIUM
     Route: 048
     Dates: start: 20110428, end: 20110501
  2. HALDOL [Suspect]
     Route: 048
     Dates: start: 20110301, end: 20110331
  3. LASIX [Suspect]
     Indication: PRODUCT USED FOR UNKNOWN INDICATION
     Route: 048
  4. IMOVANE [Suspect]
     Indication: PRODUCT USED FOR UNKNOWN INDICATION
     Route: 048
  5. CORDARONE [Concomitant]
     Route: 048
  6. ASPIRIN [Concomitant]
     Route: 048
  7. OMEPRAZOLE [Concomitant]
     Route: 048
     Dates: end: 20110401
  8. INDAPAMIDE [Suspect]
     Indication: PRODUCT USED FOR UNKNOWN INDICATION
     Route: 048
     Dates: end: 20110406
  9. VOLTAREN [Concomitant]
     Route: 003
  10. ACETAMINOPHEN [Concomitant]
     Route: 048
  11. BISOPROLOL FUMARATE [Suspect]
     Indication: PRODUCT USED FOR UNKNOWN INDICATION
     Route: 048

REACTIONS (9)
  - HYPERTENSION [None]
  - BRADYCARDIA [None]
  - SOMNOLENCE [None]
  - DISORIENTATION [None]
  - DEHYDRATION [None]
  - URINARY TRACT INFECTION [None]
  - COGWHEEL RIGIDITY [None]
  - URINARY RETENTION [None]
  - FALL [None]
